FAERS Safety Report 6315320-3 (Version None)
Quarter: 2009Q3

REPORT INFORMATION
  Report Type: 
  Country: None (occurrence: None)
  Receive Date: 20090819
  Receipt Date: 20090813
  Transmission Date: 20100115
  Serious: Yes (Hospitalization)
  Sender: FDA-Public Use
  Company Number: DK-AVENTIS-200918716GDDC

PATIENT
  Age: 78 Year
  Sex: Female

DRUGS (7)
  1. MINIRIN DDAVP [Suspect]
     Route: 060
     Dates: start: 20020214, end: 20090618
  2. CENTYL MED KALIUMKLORID [Concomitant]
     Indication: HYPERTENSION
     Route: 048
  3. CIPRAMIL                           /00582602/ [Concomitant]
     Indication: DEPRESSION
     Route: 048
  4. KALEORID [Concomitant]
  5. PACISYN [Concomitant]
  6. ZANIDIP [Concomitant]
     Route: 048
  7. VAGIFEM [Concomitant]
     Indication: INCONTINENCE
     Dosage: DOSE: UNK
     Route: 067

REACTIONS (2)
  - HYPOKALAEMIA [None]
  - HYPONATRAEMIA [None]
